FAERS Safety Report 4998624-6 (Version None)
Quarter: 2006Q2

REPORT INFORMATION
  Report Type: 
  Country: None (occurrence: None)
  Receive Date: 20060509
  Receipt Date: 20060424
  Transmission Date: 20061013
  Serious: Yes (Hospitalization)
  Sender: FDA-Public Use
  Company Number: GXKR2006ES02295

PATIENT
  Age: 31 Year
  Sex: Female

DRUGS (1)
  1. NAPROXEN [Suspect]

REACTIONS (8)
  - DRUG HYPERSENSITIVITY [None]
  - EOSINOPHILIC COLITIS [None]
  - EXCESSIVE GRANULATION TISSUE [None]
  - FIBRIN INCREASED [None]
  - LARGE INTESTINAL ULCER HAEMORRHAGE [None]
  - METABOLIC DISORDER [None]
  - NORMOCHROMIC NORMOCYTIC ANAEMIA [None]
  - REFUSAL OF TREATMENT BY PATIENT [None]
